FAERS Safety Report 10191179 (Version 1)
Quarter: 2014Q2

REPORT INFORMATION
  Report Type: Spontaneous
  Country: US (occurrence: None)
  Receive Date: 20140522
  Receipt Date: 20140522
  Transmission Date: 20141212
  Serious: Yes (Other)
  Sender: FDA-Public Use
  Company Number: None

PATIENT
  Age: 13 Year
  Sex: Female
  Weight: 27.8 kg

DRUGS (14)
  1. THYMOGLOBULIN 25 MG GENZYME [Suspect]
     Route: 042
     Dates: start: 20140519, end: 20140520
  2. ACETAMINOPHEN [Concomitant]
  3. CEFTAZIDIME [Concomitant]
  4. DIPHENHYDRAMINE [Concomitant]
  5. FERROUS SULFATE [Concomitant]
  6. FUROSEMIDE [Concomitant]
  7. GANCICLOVIR [Concomitant]
  8. HYDROCORTISONE [Concomitant]
  9. CELLCEPT [Concomitant]
  10. PREDNISONE [Concomitant]
  11. TACROLIMUS [Concomitant]
  12. RANITIDINE [Concomitant]
  13. LOPERAMIDE [Concomitant]
  14. NYSTATIN [Concomitant]

REACTIONS (5)
  - Injection site swelling [None]
  - Injection site bruising [None]
  - Injection site pain [None]
  - Injection site thrombosis [None]
  - Infusion related reaction [None]
